FAERS Safety Report 10917505 (Version 2)
Quarter: 2015Q2

REPORT INFORMATION
  Report Type: Report from Study
  Country: IE (occurrence: IE)
  Receive Date: 20150316
  Receipt Date: 20150415
  Transmission Date: 20150821
  Serious: Yes (Hospitalization, Other)
  Sender: FDA-Public Use
  Company Number: IE-SHIRE-IE201501944

PATIENT
  Age: 3 Year
  Sex: Male

DRUGS (2)
  1. IDURSULFASE [Suspect]
     Active Substance: IDURSULFASE
     Dosage: 1X/WEEK, (UNKNOWN MG ALTERNATING WITH UNKNOWN MG)
     Route: 041
     Dates: start: 20130212
  2. IDURSULFASE [Suspect]
     Active Substance: IDURSULFASE
     Indication: MUCOPOLYSACCHARIDOSIS II
     Dosage: 0.6 MG/KG, 1X/WEEK (ALTERNATING WITH 0.3 MG/KG)
     Route: 041
     Dates: start: 20130624

REACTIONS (1)
  - Respiratory tract infection [Recovered/Resolved]

NARRATIVE: CASE EVENT DATE: 20140417
